FAERS Safety Report 16966453 (Version 2)
Quarter: 2019Q4

REPORT INFORMATION
  Report Type: Spontaneous
  Country: PT (occurrence: PT)
  Receive Date: 20191028
  Receipt Date: 20191216
  Transmission Date: 20200122
  Serious: Yes (Disabling, Other)
  Sender: FDA-Public Use
  Company Number: PT-MYLANLABS-2019M1101045

PATIENT
  Age: 44 Year
  Sex: Male

DRUGS (1)
  1. ATORVASTATIN [Suspect]
     Active Substance: ATORVASTATIN
     Indication: PRODUCT USED FOR UNKNOWN INDICATION
     Dosage: 20 MILLIGRAM, QD

REACTIONS (3)
  - Loss of personal independence in daily activities [Recovered/Resolved]
  - Fatigue [Recovered/Resolved]
  - Rhabdomyolysis [Recovered/Resolved]
